FAERS Safety Report 7181648 (Version 5)
Quarter: 2013Q1

REPORT INFORMATION
  Report Type: Report from Study
  Country: KW (occurrence: KW)
  Receive Date: 20091119
  Receipt Date: 20130211
  Transmission Date: 20140127
  Serious: Yes (Other)
  Sender: FDA-Public Use
  Company Number: PHHO2009KW13984

PATIENT
  Age: 66 Year
  Sex: Male
  Weight: 101 kg

DRUGS (4)
  1. ZOLEDRONATE [Suspect]
     Indication: PROSTATE CANCER
     Dosage: 4 MG, EVERY 4 WEEKS
     Route: 042
     Dates: start: 20070926, end: 20081001
  2. ZOLEDRONATE [Suspect]
     Dosage: 4 MG, EVERY 4 WEEKS
     Route: 048
     Dates: start: 20081023, end: 20090804
  3. VITAMIN D [Concomitant]
  4. CALCIUM [Concomitant]

REACTIONS (4)
  - Bone disorder [Not Recovered/Not Resolved]
  - Pain in jaw [Not Recovered/Not Resolved]
  - Gingival pain [Not Recovered/Not Resolved]
  - Retinal detachment [Recovered/Resolved]
